FAERS Safety Report 9928854 (Version 3)
Quarter: 2014Q2

REPORT INFORMATION
  Report Type: Report from Study
  Country: US (occurrence: US)
  Receive Date: 20140227
  Receipt Date: 20140404
  Transmission Date: 20141212
  Serious: Yes (Other)
  Sender: FDA-Public Use
  Company Number: US-TEVA-464234USA

PATIENT
  Age: 77 Year
  Sex: Male
  Weight: 93.98 kg

DRUGS (5)
  1. BENDAMUSTINE [Suspect]
     Indication: CHRONIC LYMPHOCYTIC LEUKAEMIA
     Dosage: 200 MILLIGRAM DAILY;
     Route: 042
     Dates: start: 20130404, end: 20130405
  2. BENDAMUSTINE [Suspect]
     Dates: start: 20110715
  3. CLOTRIMAZOLE 1% [Concomitant]
  4. CHOLECALCIFEROL [Concomitant]
  5. ATORVASTATIN [Concomitant]

REACTIONS (3)
  - Squamous cell carcinoma of skin [Recovered/Resolved]
  - Basal cell carcinoma [Recovered/Resolved]
  - Squamous cell carcinoma of skin [Recovered/Resolved]
